FAERS Safety Report 17779025 (Version 1)
Quarter: 2020Q2

REPORT INFORMATION
  Report Type: Spontaneous
  Country: CA (occurrence: CA)
  Receive Date: 20200513
  Receipt Date: 20200513
  Transmission Date: 20200714
  Serious: Yes (Other)
  Sender: FDA-Public Use
  Company Number: CA-PFIZER INC-2020190093

PATIENT
  Age: 34 Year
  Sex: Female

DRUGS (4)
  1. AZATHIOPRINE. [Concomitant]
     Active Substance: AZATHIOPRINE
     Dosage: 75 (UNSPECIFIED UNIT), 2X/DAY
     Dates: start: 2014, end: 201808
  2. METHOTREXATE SODIUM. [Suspect]
     Active Substance: METHOTREXATE SODIUM
     Dosage: 25 MG, WEEKLY
     Route: 058
     Dates: start: 201806, end: 201809
  3. CIMZIA [Concomitant]
     Active Substance: CERTOLIZUMAB PEGOL
     Dosage: UNK
     Dates: start: 201808, end: 201812
  4. KINERET [Concomitant]
     Active Substance: ANAKINRA
     Dosage: 100 MG, 1X/DAY
     Dates: start: 2014, end: 201808

REACTIONS (5)
  - Drug intolerance [Unknown]
  - Fatigue [Unknown]
  - Product use issue [Unknown]
  - Diarrhoea [Unknown]
  - Off label use [Unknown]

NARRATIVE: CASE EVENT DATE: 201806
